FAERS Safety Report 25124794 (Version 1)
Quarter: 2025Q1

REPORT INFORMATION
  Report Type: Spontaneous
  Country: CH (occurrence: CH)
  Receive Date: 20250326
  Receipt Date: 20250326
  Transmission Date: 20250408
  Serious: Yes (Other)
  Sender: JOHNSON AND JOHNSON
  Company Number: CH-SM-2025-01857

PATIENT
  Age: 17 Year
  Sex: Female

DRUGS (14)
  1. RISPERDAL [Suspect]
     Active Substance: RISPERIDONE
     Indication: Product used for unknown indication
     Route: 065
     Dates: start: 202110
  2. RISPERDAL [Suspect]
     Active Substance: RISPERIDONE
     Route: 065
     Dates: start: 202110, end: 2024
  3. RISPERDAL [Suspect]
     Active Substance: RISPERIDONE
     Route: 065
     Dates: start: 202410, end: 202502
  4. RISPERDAL [Suspect]
     Active Substance: RISPERIDONE
     Route: 065
     Dates: start: 202502
  5. RISPERDAL [Suspect]
     Active Substance: RISPERIDONE
  6. RISPERDAL [Suspect]
     Active Substance: RISPERIDONE
  7. CYMBALTA [Suspect]
     Active Substance: DULOXETINE HYDROCHLORIDE
     Route: 065
     Dates: start: 202110
  8. LITHIUM SULFATE [Suspect]
     Active Substance: LITHIUM SULFATE
     Route: 065
     Dates: start: 202502
  9. LITHIUM SULFATE [Suspect]
     Active Substance: LITHIUM SULFATE
     Route: 065
     Dates: start: 202501, end: 202501
  10. LITHIUM SULFATE [Suspect]
     Active Substance: LITHIUM SULFATE
     Route: 065
     Dates: start: 202501, end: 202501
  11. LITHIUM SULFATE [Suspect]
     Active Substance: LITHIUM SULFATE
     Route: 065
     Dates: start: 2023, end: 202412
  12. LITHIUM SULFATE [Suspect]
     Active Substance: LITHIUM SULFATE
     Route: 065
     Dates: start: 202302
  13. LEVOTHYROXINE [Concomitant]
     Active Substance: LEVOTHYROXINE
     Dates: start: 2023
  14. VENOFER [Concomitant]
     Active Substance: IRON SUCROSE
     Indication: Iron deficiency
     Dates: start: 202501

REACTIONS (9)
  - Hypothyroidism [Not Recovered/Not Resolved]
  - Acne [Recovering/Resolving]
  - Hyperprolactinaemia [Unknown]
  - Weight increased [Recovered/Resolved]
  - Abdominal pain [Not Recovered/Not Resolved]
  - Breast discomfort [Not Recovered/Not Resolved]
  - Headache [Not Recovered/Not Resolved]
  - Heavy menstrual bleeding [Not Recovered/Not Resolved]
  - Constipation [Not Recovered/Not Resolved]

NARRATIVE: CASE EVENT DATE: 20230101
